FAERS Safety Report 6905139-4 (Version None)
Quarter: 2010Q3

REPORT INFORMATION
  Report Type: 
  Country: None (occurrence: None)
  Receive Date: 20100804
  Receipt Date: 20091012
  Transmission Date: 20110219
  Serious: Yes (Other)
  Sender: FDA-Public Use
  Company Number: US-PFIZER INC-2009227658

PATIENT
  Sex: Female
  Weight: 78.912 kg

DRUGS (15)
  1. LYRICA [Suspect]
     Indication: FIBROMYALGIA
     Dosage: 50 MG, 3 AT BEDTIME
     Route: 048
     Dates: start: 20080118, end: 20090615
  2. CELEBREX [Concomitant]
     Dosage: 200 MG, 1X/DAY
  3. VALTREX [Concomitant]
  4. MECLOZINE [Concomitant]
  5. VITAMIN B-12 [Concomitant]
     Dosage: UNK
     Route: 030
  6. SYNTHROID [Concomitant]
     Dosage: UNK
     Route: 048
  7. WELLBUTRIN XL [Concomitant]
     Dosage: 300 MG, 1X/DAY
  8. FLEXERIL [Concomitant]
     Dosage: 10 MG, 1X/DAY
  9. AMLODIPINE [Concomitant]
     Dosage: 1.25 MG, 1X/DAY
  10. VALIUM [Concomitant]
     Dosage: 2 MG, 2X/DAY
     Route: 048
  11. AMBIEN [Concomitant]
     Dosage: 10 MG, 1X/DAY
  12. CHONDROITIN/GLUCOSAMINE/METHYLSULFONYLMETHANE [Concomitant]
  13. LOW-OGESTREL [Concomitant]
  14. FOSAMAX [Concomitant]
     Dosage: 70 MG, WEEKLY
     Route: 048
  15. FENTANYL [Concomitant]
     Dosage: UNK

REACTIONS (14)
  - ARTHROPATHY [None]
  - ASTHENIA [None]
  - ASTHMA [None]
  - CHROMATURIA [None]
  - DEPRESSION [None]
  - DRUG INEFFECTIVE [None]
  - INSOMNIA [None]
  - LACRIMATION INCREASED [None]
  - OSTEOPENIA [None]
  - RHABDOMYOLYSIS [None]
  - SWELLING [None]
  - UPPER RESPIRATORY TRACT INFECTION [None]
  - VISION BLURRED [None]
  - WEIGHT INCREASED [None]
